FAERS Safety Report 6979096-9 (Version None)
Quarter: 2010Q3

REPORT INFORMATION
  Report Type: 
  Country: None (occurrence: None)
  Receive Date: 20100913
  Receipt Date: 20100901
  Transmission Date: 20110219
  Serious: Yes (Hospitalization, Other)
  Sender: FDA-Public Use
  Company Number: PHHY2010BR58288

PATIENT
  Sex: Male

DRUGS (6)
  1. EXFORGE [Suspect]
     Indication: HYPERTENSION
     Dosage: ONE TABLET (160/5 MG) DAILY
     Route: 048
  2. METFORMIN [Concomitant]
     Dosage: 2 TABLETS (850 MG) DAILY
     Route: 048
  3. MONOCORDIL [Concomitant]
     Indication: CORONARY REVASCULARISATION
     Dosage: 2 TABLETS DAILY
     Route: 048
  4. TICLID [Concomitant]
     Indication: CORONARY REVASCULARISATION
     Dosage: 2 TABLETS DAILY
     Route: 048
  5. CRESTOR [Concomitant]
     Indication: BLOOD CHOLESTEROL INCREASED
     Dosage: ONE TABLET DAILY
  6. AMLODIPINE BESYLATE [Concomitant]
     Indication: HYPERTENSION
     Dosage: ONE TABLET DAILY
     Route: 048

REACTIONS (9)
  - BLOOD PRESSURE INADEQUATELY CONTROLLED [None]
  - CATHETERISATION CARDIAC [None]
  - CORONARY ARTERY OCCLUSION [None]
  - CORONARY REVASCULARISATION [None]
  - ERYTHEMA [None]
  - PRURITUS [None]
  - SOMNOLENCE [None]
  - STRESS [None]
  - VASCULAR GRAFT [None]
